FAERS Safety Report 5154046-9 (Version None)
Quarter: 2006Q4

REPORT INFORMATION
  Report Type: 
  Country: None (occurrence: None)
  Receive Date: 20061120
  Receipt Date: 20061110
  Transmission Date: 20070319
  Serious: Yes (Hospitalization)
  Sender: FDA-Public Use
  Company Number: FR-ROCHE-470775

PATIENT
  Age: 53 Year
  Sex: Male

DRUGS (2)
  1. RIVOTRIL [Suspect]
     Dosage: DRUG REPORTED AS RIVOTRIL ROCHE.
     Route: 048
     Dates: start: 20060715, end: 20061015
  2. DURAGESIC-100 [Suspect]
     Dosage: ROUTE REPORTED AS LOCAL.
     Route: 050
     Dates: start: 20060815, end: 20061015

REACTIONS (1)
  - PURPURA [None]
